FAERS Safety Report 5464459-3 (Version None)
Quarter: 2007Q3

REPORT INFORMATION
  Report Type: 
  Country: None (occurrence: None)
  Receive Date: 20070921
  Receipt Date: 20070912
  Transmission Date: 20080115
  Serious: Yes (Hospitalization)
  Sender: FDA-Public Use
  Company Number: FR-AVENTIS-200613301FR

PATIENT
  Age: 47 Year
  Sex: Male

DRUGS (6)
  1. ARAVA [Suspect]
     Indication: MYALGIA
     Route: 048
     Dates: start: 20060731, end: 20060905
  2. ARAVA [Suspect]
     Route: 048
     Dates: start: 20060731, end: 20060905
  3. METHOTREXATE [Concomitant]
     Indication: MYALGIA
     Dates: start: 20060601, end: 20060701
  4. BREXIN                             /00500404/ [Concomitant]
     Indication: MYALGIA
     Route: 048
     Dates: start: 20060601
  5. CORTICOSTEROIDS [Concomitant]
     Indication: MYALGIA
     Dates: start: 20060101
  6. LAROXYL [Concomitant]
     Dates: start: 20060601

REACTIONS (4)
  - DIARRHOEA [None]
  - GASTROINTESTINAL DISORDER [None]
  - HYPERCHOLESTEROLAEMIA [None]
  - HYPERTRIGLYCERIDAEMIA [None]
